FAERS Safety Report 7736081-7 (Version None)
Quarter: 2011Q3

REPORT INFORMATION
  Report Type: 
  Country: None (occurrence: None)
  Receive Date: 20110902
  Receipt Date: 20110729
  Transmission Date: 20111222
  Serious: Yes (Other)
  Sender: FDA-Public Use
  Company Number: 984021

PATIENT
  Sex: Female

DRUGS (2)
  1. CARBOPLATIN [Suspect]
     Indication: PRODUCT USED FOR UNKNOWN INDICATION
  2. PACLITAXEL [Suspect]
     Indication: PRODUCT USED FOR UNKNOWN INDICATION

REACTIONS (9)
  - MANIA [None]
  - CONFUSIONAL STATE [None]
  - DELIRIUM [None]
  - AGITATION [None]
  - GRANDIOSITY [None]
  - DELUSION [None]
  - ALTERED STATE OF CONSCIOUSNESS [None]
  - INSOMNIA [None]
  - AFFECT LABILITY [None]
